FAERS Safety Report 17456480 (Version 5)
Quarter: 2020Q2

REPORT INFORMATION
  Report Type: Report from Study
  Country: US (occurrence: US)
  Receive Date: 20200225
  Receipt Date: 20200414
  Transmission Date: 20200713
  Serious: No
  Sender: FDA-Public Use
  Company Number: US-PFIZER INC-2020081805

PATIENT
  Age: 31 Year
  Sex: Male

DRUGS (5)
  1. BOSULIF [Suspect]
     Active Substance: BOSUTINIB MONOHYDRATE
     Indication: CHRONIC MYELOID LEUKAEMIA
     Dosage: 400 MG, Q (EVERY) DAY
     Route: 048
     Dates: start: 20200206
  2. BOSULIF [Suspect]
     Active Substance: BOSUTINIB MONOHYDRATE
     Dosage: 400 MG, DAILY
     Route: 048
     Dates: start: 20200214
  3. BARACLUDE [Concomitant]
     Active Substance: ENTECAVIR
     Indication: RENAL TRANSPLANT
     Dosage: UNK
  4. BOSULIF [Suspect]
     Active Substance: BOSUTINIB MONOHYDRATE
     Dosage: 400 MG, DAILY
     Route: 048
     Dates: start: 20200211
  5. PROGRAF [Concomitant]
     Active Substance: TACROLIMUS
     Indication: RENAL TRANSPLANT
     Dosage: UNK

REACTIONS (13)
  - Back pain [Unknown]
  - White blood cell count decreased [Unknown]
  - Nausea [Recovered/Resolved]
  - Choking sensation [Unknown]
  - Hyperhidrosis [Unknown]
  - Diarrhoea [Recovered/Resolved]
  - Dyspnoea [Unknown]
  - Headache [Unknown]
  - Vomiting [Recovered/Resolved]
  - Blood count abnormal [Unknown]
  - Hot flush [Unknown]
  - Pain [Unknown]
  - Chest discomfort [Unknown]

NARRATIVE: CASE EVENT DATE: 20200225
